FAERS Safety Report 8422528-X (Version None)
Quarter: 2012Q2

REPORT INFORMATION
  Report Type: 
  Country: None (occurrence: None)
  Receive Date: 20120323
  Receipt Date: 20110817
  Transmission Date: 20120825
  Serious: Yes (Death)
  Sender: FDA-Public Use
  Company Number: 163-21880-11082131

PATIENT
  Sex: Male

DRUGS (2)
  1. BLOOD (BLOOD AND RELATED PRODUCTS) [Concomitant]
  2. LENALIDOMIDE [Suspect]
     Indication: PRODUCT USED FOR UNKNOWN INDICATION
     Dosage: PO
     Route: 048

REACTIONS (1)
  - CARDIAC FAILURE CONGESTIVE [None]
